FAERS Safety Report 13129424 (Version 1)
Quarter: 2017Q1

REPORT INFORMATION
  Report Type: Report from Study
  Country: None (occurrence: US)
  Receive Date: 20170119
  Receipt Date: 20170119
  Transmission Date: 20170428
  Serious: Yes (Hospitalization, Other)
  Sender: FDA-Public Use
  Company Number: US-ABBVIE-16K-163-1790982-00

PATIENT
  Age: 22 Year
  Sex: Female
  Weight: 77.18 kg

DRUGS (2)
  1. HUMIRA [Suspect]
     Active Substance: ADALIMUMAB
     Indication: CROHN^S DISEASE
     Route: 058
     Dates: start: 2013, end: 201611
  2. MERCAPTOPURINE. [Concomitant]
     Active Substance: MERCAPTOPURINE
     Indication: CROHN^S DISEASE

REACTIONS (9)
  - Intestinal obstruction [Recovered/Resolved]
  - Abdominal tenderness [Recovered/Resolved]
  - Haemorrhoids [Recovered/Resolved]
  - Vomiting [Recovered/Resolved]
  - Drug ineffective [Not Recovered/Not Resolved]
  - Drug effect decreased [Unknown]
  - Diarrhoea [Recovered/Resolved]
  - Abdominal distension [Recovered/Resolved]
  - Nausea [Recovered/Resolved]

NARRATIVE: CASE EVENT DATE: 201610
